FAERS Safety Report 16037706 (Version 1)
Quarter: 2019Q1

REPORT INFORMATION
  Report Type: Spontaneous
  Country: US (occurrence: US)
  Receive Date: 20190305
  Receipt Date: 20190305
  Transmission Date: 20190418
  Serious: No
  Sender: FDA-Public Use
  Company Number: US-IMPAX LABORATORIES, LLC-2018-IPXL-04448

PATIENT
  Sex: Male

DRUGS (1)
  1. RYTARY [Suspect]
     Active Substance: CARBIDOPA\LEVODOPA
     Indication: PARKINSON^S DISEASE
     Dosage: 17 DOSAGE FORM, DAILY (48.75/195MG FOUR CAPSULES AT 7AM, 3 AT 12PM, 4 AT 5PM AND 3 AT 10PM)
     Route: 048
     Dates: start: 201810, end: 2018

REACTIONS (4)
  - Prescribed overdose [Unknown]
  - Hallucination [Unknown]
  - Dry mouth [Unknown]
  - Anxiety [Unknown]

NARRATIVE: CASE EVENT DATE: 2018
